FAERS Safety Report 23853640 (Version 1)
Quarter: 2024Q2

REPORT INFORMATION
  Report Type: Spontaneous
  Country: FR (occurrence: FR)
  Receive Date: 20240514
  Receipt Date: 20240514
  Transmission Date: 20240716
  Serious: Yes (Other)
  Sender: FDA-Public Use
  Company Number: None

PATIENT
  Age: 54 Year
  Sex: Female

DRUGS (2)
  1. RITUXIMAB [Suspect]
     Active Substance: RITUXIMAB
     Indication: Muscular weakness
     Dosage: 1 TREATMENT EVERY 6 MONTHS?LAST DOSE NOV/2023
     Route: 065
     Dates: start: 202305
  2. COLPRONE [Suspect]
     Active Substance: MEDROGESTONE
     Indication: Menopause
     Route: 065
     Dates: start: 20231107, end: 20240408

REACTIONS (1)
  - Pulmonary embolism [Recovering/Resolving]

NARRATIVE: CASE EVENT DATE: 20240408
